FAERS Safety Report 5285910-8 (Version None)
Quarter: 2007Q1

REPORT INFORMATION
  Report Type: 
  Country: None (occurrence: None)
  Receive Date: 20070329
  Receipt Date: 20070323
  Transmission Date: 20070707
  Serious: Yes (Hospitalization)
  Sender: FDA-Public Use
  Company Number: 26505

PATIENT
  Age: 51 Year
  Sex: Female
  Weight: 95 kg

DRUGS (9)
  1. NIASPAN [Suspect]
     Indication: HIGH DENSITY LIPOPROTEIN DECREASED
     Dosage: 2000 MG QD PO
     Route: 048
  2. NIASPAN [Suspect]
     Indication: METABOLIC SYNDROME
     Dosage: 2000 MG QD PO
     Route: 048
  3. PIOGLITAZONE [Suspect]
     Indication: HIGH DENSITY LIPOPROTEIN DECREASED
  4. PIOGLITAZONE [Suspect]
     Indication: METABOLIC SYNDROME
  5. WELLBUTRIN [Concomitant]
  6. LEXAPRO [Concomitant]
  7. PRAVACHOL [Concomitant]
  8. PREVACID [Concomitant]
  9. RISPERDAL [Concomitant]

REACTIONS (2)
  - CONDITION AGGRAVATED [None]
  - SCHIZOPHRENIA, PARANOID TYPE [None]
